FAERS Safety Report 4483867-0 (Version None)
Quarter: 2004Q4

REPORT INFORMATION
  Report Type: 
  Country: None (occurrence: None)
  Receive Date: 20041025
  Receipt Date: 20041014
  Transmission Date: 20050328
  Serious: Yes (Hospitalization)
  Sender: FDA-Public Use
  Company Number: FR-JNJFOC-20041004921

PATIENT
  Age: 41 Year
  Sex: Female

DRUGS (7)
  1. RISPERDAL [Suspect]
     Indication: DRUG USE FOR UNKNOWN INDICATION
     Route: 049
  2. NOZINAN [Concomitant]
     Route: 065
  3. TRIMEPRAZINE TAB [Concomitant]
     Route: 065
  4. LYSANXIA [Concomitant]
  5. LEVONORGESTREL [Concomitant]
  6. LEVONORGESTREL [Concomitant]
  7. ALDACTONE [Concomitant]

REACTIONS (3)
  - PERICARDITIS [None]
  - PLEURISY [None]
  - PLEUROPERICARDITIS [None]
